FAERS Safety Report 15742920 (Version 2)
Quarter: 2019Q1

REPORT INFORMATION
  Report Type: Report from Study
  Country: None (occurrence: US)
  Receive Date: 20181220
  Receipt Date: 20190204
  Transmission Date: 20190417
  Serious: Yes (Hospitalization, Other)
  Sender: FDA-Public Use
  Company Number: US-ABBVIE-18K-163-2591820-00

PATIENT
  Sex: Male

DRUGS (3)
  1. VENCLEXTA [Suspect]
     Active Substance: VENETOCLAX
     Route: 048
     Dates: start: 201811
  2. VENCLEXTA [Suspect]
     Active Substance: VENETOCLAX
     Route: 048
  3. VENCLEXTA [Suspect]
     Active Substance: VENETOCLAX
     Indication: CHRONIC LYMPHOCYTIC LEUKAEMIA
     Route: 048
     Dates: start: 20180901, end: 201811

REACTIONS (10)
  - Swelling face [Recovered/Resolved]
  - Procedural complication [Unknown]
  - Dry eye [Unknown]
  - Abdominal distension [Recovered/Resolved]
  - Eye discharge [Unknown]
  - Pruritus generalised [Unknown]
  - Pneumonia [Unknown]
  - Peripheral swelling [Recovered/Resolved]
  - Neoplasm malignant [Unknown]
  - Skin discolouration [Unknown]

NARRATIVE: CASE EVENT DATE: 2018
